FAERS Safety Report 11252968 (Version 1)
Quarter: 2015Q3

REPORT INFORMATION
  Report Type: Spontaneous
  Country: FR (occurrence: FR)
  Receive Date: 20150708
  Receipt Date: 20150708
  Transmission Date: 20151125
  Serious: Yes (Hospitalization)
  Sender: FDA-Public Use
  Company Number: FR-009507513-1507FRA002591

PATIENT
  Age: 76 Year
  Sex: Male

DRUGS (14)
  1. CREON [Concomitant]
     Active Substance: PANCRELIPASE AMYLASE\PANCRELIPASE LIPASE\PANCRELIPASE PROTEASE
  2. TEMODAL [Suspect]
     Active Substance: TEMOZOLOMIDE
     Dosage: UNK, CYCLICAL
     Route: 048
     Dates: start: 20150518, end: 20150518
  3. PANTOPRAZOLE [Concomitant]
     Active Substance: PANTOPRAZOLE SODIUM
  4. IXEL [Concomitant]
     Active Substance: MILNACIPRAN HYDROCHLORIDE
  5. ALDACTONE [Concomitant]
     Active Substance: SPIRONOLACTONE
  6. TEMODAL [Suspect]
     Active Substance: TEMOZOLOMIDE
     Indication: INSULINOMA
     Dosage: UNK, CYCLICAL
     Route: 048
     Dates: start: 201405
  7. LEVOTHYROX [Concomitant]
     Active Substance: LEVOTHYROXINE
  8. PROGLICEM [Suspect]
     Active Substance: DIAZOXIDE
     Dosage: DAILY DOSE 11 TABLETS (4/3/4)
     Route: 048
     Dates: start: 20150601, end: 20150616
  9. PROGLICEM [Suspect]
     Active Substance: DIAZOXIDE
     Indication: HYPOGLYCAEMIA
     Dosage: DAILY DOSE 7 TABLETS  (2/2/3)
     Route: 048
     Dates: start: 20150501, end: 20150531
  10. AVASTIN (SIMVASTATIN) [Suspect]
     Active Substance: SIMVASTATIN
     Indication: INSULINOMA
     Dosage: UNK, CYCLICAL (STRENGTH 25 MG/ML)
     Route: 042
     Dates: start: 201405
  11. AVASTIN (SIMVASTATIN) [Suspect]
     Active Substance: SIMVASTATIN
     Dosage: UNK, CYCLICAL (STRENGTH 25 MG/ML)
     Route: 042
     Dates: start: 20150518, end: 20150518
  12. ALPRAZOLAM. [Concomitant]
     Active Substance: ALPRAZOLAM
  13. SIGNIFOR [Suspect]
     Active Substance: PASIREOTIDE
     Dosage: UNK
     Route: 048
     Dates: start: 20150601, end: 20150611
  14. SOTALOL. [Concomitant]
     Active Substance: SOTALOL

REACTIONS (2)
  - Acute kidney injury [Not Recovered/Not Resolved]
  - Thrombocytopenia [Not Recovered/Not Resolved]

NARRATIVE: CASE EVENT DATE: 201506
